FAERS Safety Report 5948045-4 (Version None)
Quarter: 2008Q4

REPORT INFORMATION
  Report Type: 
  Country: None (occurrence: None)
  Receive Date: 20081110
  Receipt Date: 20081110
  Transmission Date: 20090506
  Serious: No
  Sender: FDA-Public Use
  Company Number: None

PATIENT
  Sex: Female
  Weight: 64.5 kg

DRUGS (2)
  1. CARBOPLATIN [Suspect]
     Dosage: 6 UNIT
  2. TAXOL [Suspect]
     Dosage: 175 MG

REACTIONS (1)
  - NEUTROPHIL COUNT DECREASED [None]
